FAERS Safety Report 4887928-3 (Version None)
Quarter: 2006Q1

REPORT INFORMATION
  Report Type: 
  Country: None (occurrence: None)
  Receive Date: 20060119
  Receipt Date: 20060119
  Transmission Date: 20060701
  Serious: Yes (Life-Threatening)
  Sender: FDA-Public Use
  Company Number: None

PATIENT
  Age: 2 Year
  Sex: Female
  Weight: 20.4119 kg

DRUGS (1)
  1. WAL-OPHEN EXTRA STRENGTH WALGREEN'S [Suspect]

REACTIONS (1)
  - MEDICATION ERROR [None]
